FAERS Safety Report 26007172 (Version 2)
Quarter: 2025Q4

REPORT INFORMATION
  Report Type: Spontaneous
  Country: EU (occurrence: EU)
  Receive Date: 20251106
  Receipt Date: 20251230
  Transmission Date: 20260117
  Serious: Yes (Hospitalization, Other)
  Sender: BAUSCH AND LOMB
  Company Number: EU-PMCS-2025001299

PATIENT
  Age: 67 Year
  Sex: Male

DRUGS (10)
  1. ACYCLOVIR [Suspect]
     Active Substance: ACYCLOVIR
     Indication: Herpes virus infection
     Route: 065
  2. ACYCLOVIR [Suspect]
     Active Substance: ACYCLOVIR
     Indication: Prophylaxis
  3. METAMIZOLE [Suspect]
     Active Substance: METAMIZOLE
     Indication: Analgesic therapy
     Route: 065
  4. COTRIMOXAZOLE [Suspect]
     Active Substance: SULFAMETHOXAZOLE\TRIMETHOPRIM
     Indication: Pneumocystis jirovecii pneumonia
     Route: 065
  5. COTRIMOXAZOLE [Suspect]
     Active Substance: SULFAMETHOXAZOLE\TRIMETHOPRIM
     Indication: Prophylaxis
  6. ENCORAFENIB [Suspect]
     Active Substance: ENCORAFENIB
     Indication: Off label use
     Route: 048
  7. BINIMETINIB [Suspect]
     Active Substance: BINIMETINIB
     Indication: Off label use
     Dosage: DIVIDED INTO TWO DAILY ADMINISTRATIONS
     Route: 065
  8. FENTANYL [Suspect]
     Active Substance: FENTANYL
     Indication: Analgesic therapy
     Route: 062
  9. FENTANYL [Suspect]
     Active Substance: FENTANYL
     Route: 065
  10. PREGABALIN [Suspect]
     Active Substance: PREGABALIN
     Indication: Analgesic therapy
     Route: 065

REACTIONS (2)
  - Acute kidney injury [Unknown]
  - Dermatitis exfoliative generalised [Recovered/Resolved]
